FAERS Safety Report 9337142 (Version 1)
Quarter: 2013Q2

REPORT INFORMATION
  Report Type: Spontaneous
  Country: US (occurrence: US)
  Receive Date: 20130607
  Receipt Date: 20130607
  Transmission Date: 20140414
  Serious: Yes (Hospitalization)
  Sender: FDA-Public Use
  Company Number: US-JNJFOC-20130518016

PATIENT
  Sex: Female
  Weight: 77.11 kg

DRUGS (4)
  1. DURAGESIC [Suspect]
     Indication: BACK PAIN
     Route: 062
     Dates: start: 1998
  2. DURAGESIC [Suspect]
     Indication: CHEST PAIN
     Route: 062
     Dates: start: 1998
  3. DURAGESIC [Suspect]
     Indication: PRODUCT USED FOR UNKNOWN INDICATION
     Dosage: 20 YEARS AGO
     Route: 062
  4. UNSPECIFIED FENTANYL [Suspect]
     Indication: PRODUCT USED FOR UNKNOWN INDICATION
     Route: 062

REACTIONS (10)
  - Coma [Recovered/Resolved]
  - Diabetes mellitus [Recovered/Resolved]
  - Laryngitis [Not Recovered/Not Resolved]
  - Somnolence [Recovered/Resolved]
  - Abasia [Recovered/Resolved]
  - Drug dose omission [Unknown]
  - Product quality issue [Recovered/Resolved]
  - Wrong technique in drug usage process [Recovered/Resolved]
  - Wrong technique in drug usage process [Recovered/Resolved]
  - Unevaluable event [Recovered/Resolved]
